FAERS Safety Report 26069214 (Version 2)
Quarter: 2025Q4

REPORT INFORMATION
  Report Type: Spontaneous
  Country: US (occurrence: US)
  Receive Date: 20251120
  Receipt Date: 20251217
  Transmission Date: 20260117
  Serious: Yes (Other)
  Sender: INSMED
  Company Number: US-INSMED, INC.-2025-06680-US

PATIENT
  Sex: Female

DRUGS (3)
  1. BRINSUPRI [Suspect]
     Active Substance: BRENSOCATIB
     Indication: Bronchiectasis
     Dosage: 10 MILLIGRAM, QD
     Route: 048
     Dates: start: 20250919
  2. DUONEB [Suspect]
     Active Substance: ALBUTEROL SULFATE\IPRATROPIUM BROMIDE
     Indication: Product used for unknown indication
     Dosage: UNK, UNK
     Route: 055
     Dates: start: 2025
  3. ALBUTEROL [Concomitant]
     Active Substance: ALBUTEROL
     Indication: Product used for unknown indication
     Dosage: UNK, UNK
     Route: 065
     Dates: end: 2025

REACTIONS (5)
  - Emergency care [Unknown]
  - Dizziness [Unknown]
  - Oxygen consumption increased [Unknown]
  - Headache [Not Recovered/Not Resolved]
  - Drug ineffective [Unknown]

NARRATIVE: CASE EVENT DATE: 20250101
